FAERS Safety Report 6686083-7 (Version None)
Quarter: 2010Q2

REPORT INFORMATION
  Report Type: 
  Country: None (occurrence: None)
  Receive Date: 20100419
  Receipt Date: 20100408
  Transmission Date: 20101027
  Serious: Yes (Other)
  Sender: FDA-Public Use
  Company Number: US-JNJFOC-20100403246

PATIENT
  Sex: Female
  Weight: 70.31 kg

DRUGS (5)
  1. DURAGESIC-100 [Suspect]
     Indication: PAIN
     Route: 062
  2. DURAGESIC-100 [Suspect]
     Route: 062
  3. FENTANYL CITRATE [Suspect]
     Indication: PAIN
     Route: 062
  4. DURAGESIC-100 [Suspect]
     Route: 062
  5. DURAGESIC-100 [Suspect]
     Route: 062

REACTIONS (6)
  - APPLICATION SITE PAIN [None]
  - APPLICATION SITE REACTION [None]
  - DRUG EFFECT DECREASED [None]
  - DRUG INEFFECTIVE [None]
  - GLUCOSE TOLERANCE IMPAIRED [None]
  - TREATMENT NONCOMPLIANCE [None]
